FAERS Safety Report 9447903 (Version 1)
Quarter: 2013Q3

REPORT INFORMATION
  Report Type: Spontaneous
  Country: US (occurrence: None)
  Receive Date: 20130807
  Receipt Date: 20130807
  Transmission Date: 20140515
  Serious: Yes (Life-Threatening, Hospitalization)
  Sender: FDA-Public Use
  Company Number: None

PATIENT
  Age: 71 Year
  Sex: Female
  Weight: 65.9 kg

DRUGS (9)
  1. RIVAROXABAN [Suspect]
     Indication: ANTICOAGULANT THERAPY
     Dosage: 1 TABLET QD ORAL
     Route: 048
  2. ALENDRONATE [Concomitant]
  3. ATORVASTATIN [Concomitant]
  4. PRILOSEC [Concomitant]
  5. CITALOPRAM [Concomitant]
  6. DILTIAZEM [Concomitant]
  7. ADVAIR [Concomitant]
  8. XARELTO [Concomitant]
  9. COLACE [Concomitant]

REACTIONS (2)
  - Perirenal haematoma [None]
  - Spontaneous haemorrhage [None]
